FAERS Safety Report 10218256 (Version 2)
Quarter: 2014Q2

REPORT INFORMATION
  Report Type: Report from Study
  Country: US (occurrence: US)
  Receive Date: 20140605
  Receipt Date: 20140605
  Transmission Date: 20141212
  Serious: Yes (Other)
  Sender: FDA-Public Use
  Company Number: US-ROCHE-1370021

PATIENT
  Age: 76 Year
  Sex: Male
  Weight: 88.08 kg

DRUGS (6)
  1. AVASTIN [Suspect]
     Indication: NON-SMALL CELL LUNG CANCER
     Route: 065
     Dates: start: 20140228
  2. FOLIC ACID [Concomitant]
     Route: 048
     Dates: start: 20140228
  3. OMEPRAZOLE [Concomitant]
     Indication: DYSPEPSIA
     Route: 048
  4. LIPITOR [Concomitant]
     Indication: BLOOD CHOLESTEROL INCREASED
     Route: 048
  5. DEXAMETHASONE [Concomitant]
     Dosage: DAY BEFORE, DAY OF + DAY AFTER TX
     Route: 048
     Dates: start: 20140228
  6. ACETAMINOPHEN [Concomitant]
     Indication: PAIN
     Route: 048
     Dates: start: 20140228

REACTIONS (5)
  - Visual acuity reduced [Recovering/Resolving]
  - Aphagia [Not Recovered/Not Resolved]
  - Decreased appetite [Not Recovered/Not Resolved]
  - Bone pain [Not Recovered/Not Resolved]
  - Decreased appetite [Recovering/Resolving]
